FAERS Safety Report 8234557-X (Version None)
Quarter: 2012Q1

REPORT INFORMATION
  Report Type: 
  Country: None (occurrence: None)
  Receive Date: 20120326
  Receipt Date: 20120208
  Transmission Date: 20120608
  Serious: No
  Sender: FDA-Public Use
  Company Number: US-MYLANLABS-2012S1002933

PATIENT
  Sex: Male

DRUGS (1)
  1. NIFEDIPINE [Suspect]

REACTIONS (4)
  - DEPRESSION [None]
  - INSOMNIA [None]
  - DIZZINESS [None]
  - HYPOTENSION [None]
